FAERS Safety Report 11669262 (Version 2)
Quarter: 2018Q1

REPORT INFORMATION
  Report Type: Report from Study
  Country: PL (occurrence: PL)
  Receive Date: 20151027
  Receipt Date: 20180209
  Transmission Date: 20180508
  Serious: Yes (Hospitalization)
  Sender: FDA-Public Use
  Company Number: PL-BAXALTA-2015BLT002292

PATIENT
  Age: 2 Year
  Sex: Male
  Weight: 15 kg

DRUGS (24)
  1. BIOARON C [Concomitant]
     Indication: NASOPHARYNGITIS
  2. FLAVAMED                           /00546002/ [Concomitant]
     Indication: NASOPHARYNGITIS
  3. LAKCID                             /00079701/ [Concomitant]
     Indication: BRONCHITIS
  4. OTINUM [Concomitant]
     Indication: BRONCHITIS
  5. PULNEO [Concomitant]
     Indication: NASOPHARYNGITIS
  6. PROPOFOL. [Concomitant]
     Active Substance: PROPOFOL
     Indication: GENERAL ANAESTHESIA
     Dosage: 70 MG, ONCE
     Route: 065
     Dates: start: 20140910, end: 20140910
  7. OTINUM [Concomitant]
     Indication: EAR PAIN
  8. OTRIVIN [Concomitant]
     Active Substance: XYLOMETAZOLINE
     Indication: NASOPHARYNGITIS
  9. PLAVOS [Concomitant]
     Indication: NASOPHARYNGITIS
  10. PROSPAN                            /00381502/ [Concomitant]
     Indication: NASOPHARYNGITIS
  11. ZINNAT                             /00454602/ [Concomitant]
     Active Substance: CEFUROXIME SODIUM
     Indication: BRONCHITIS
  12. KLACID                             /00984601/ [Concomitant]
     Active Substance: CLARITHROMYCIN
     Indication: BRONCHITIS
  13. NEOSINE [Concomitant]
     Active Substance: INOSINE PRANOBEX
     Indication: NASOPHARYNGITIS
  14. CLEMASTINUM                        /00137201/ [Concomitant]
     Indication: NASOPHARYNGITIS
  15. MUCOSOLVAN [Concomitant]
     Active Substance: AMBROXOL HYDROCHLORIDE
     Indication: BRONCHITIS
  16. NASIVIN                            /00070002/ [Concomitant]
     Indication: NASOPHARYNGITIS
  17. SULFACETAMIDUM H-E-C [Concomitant]
     Indication: NASOPHARYNGITIS
  18. ADVATE [Suspect]
     Active Substance: ANTIHEMOPHILIC FACTOR, HUMAN RECOMBINANT
     Dosage: 500 IU, 3X A WEEK
     Route: 042
     Dates: start: 20140911
  19. ACIDOLAC [Concomitant]
     Indication: ANTIBIOTIC THERAPY
  20. ADVATE [Suspect]
     Active Substance: ANTIHEMOPHILIC FACTOR, HUMAN RECOMBINANT
     Indication: HAEMORRHAGE PROPHYLAXIS
     Dosage: 500 IU, ONCE
     Route: 042
     Dates: start: 20140908, end: 20140908
  21. ADVATE [Suspect]
     Active Substance: ANTIHEMOPHILIC FACTOR, HUMAN RECOMBINANT
     Indication: FACTOR VIII DEFICIENCY
     Dosage: 750 IU (500 +2) 2 DAILY DOSE SECOND DOSE 500 IU
     Route: 042
     Dates: start: 20140910, end: 20140911
  22. CLEMASTIN [Concomitant]
     Active Substance: CLEMASTINE
     Indication: NASOPHARYNGITIS
  23. DICOFLOR                           /03562201/ [Concomitant]
     Indication: BRONCHITIS
  24. VITAMINUM C [Concomitant]
     Indication: NASOPHARYNGITIS

REACTIONS (1)
  - Thyroid mass [Recovered/Resolved]

NARRATIVE: CASE EVENT DATE: 201408
